FAERS Safety Report 18105072 (Version 2)
Quarter: 2020Q3

REPORT INFORMATION
  Report Type: Spontaneous
  Country: AT (occurrence: AT)
  Receive Date: 20200803
  Receipt Date: 20200817
  Transmission Date: 20201103
  Serious: Yes (Hospitalization, Other)
  Sender: FDA-Public Use
  Company Number: AT-SA-2020SA198479

PATIENT

DRUGS (3)
  1. OMNI BIOTIC FLORA PLUS [Concomitant]
  2. DUPIXENT [Suspect]
     Active Substance: DUPILUMAB
     Indication: DERMATITIS ATOPIC
     Dosage: 600 MG, 1X
     Dates: start: 20200724, end: 20200724
  3. VITAMIN B NOS [Concomitant]
     Active Substance: VITAMIN B

REACTIONS (3)
  - Anaphylactic reaction [Unknown]
  - Urticarial dermatitis [Unknown]
  - Pruritus [Unknown]

NARRATIVE: CASE EVENT DATE: 20200726
